FAERS Safety Report 10360391 (Version 1)
Quarter: 2014Q3

REPORT INFORMATION
  Report Type: Spontaneous
  Country: IN (occurrence: IN)
  Receive Date: 20140804
  Receipt Date: 20140804
  Transmission Date: 20150326
  Serious: Yes (Hospitalization)
  Sender: FDA-Public Use
  Company Number: IN-ASTRAZENECA-2014SE54687

PATIENT
  Age: 36 Year
  Sex: Male

DRUGS (9)
  1. PROPOFOL. [Suspect]
     Active Substance: PROPOFOL
     Indication: EPILEPSY
     Route: 042
  2. PROPOFOL. [Suspect]
     Active Substance: PROPOFOL
     Indication: EPILEPSY
     Dosage: TAPPERED OVER 24 HOURS
     Route: 042
  3. FENTANYL. [Concomitant]
     Active Substance: FENTANYL
     Route: 037
  4. MIDAZOLAM [Concomitant]
     Active Substance: MIDAZOLAM\MIDAZOLAM HYDROCHLORIDE
  5. BUPIVACAINE [Suspect]
     Active Substance: BUPIVACAINE
     Indication: SPINAL ANAESTHESIA
     Route: 037
  6. PROPOFOL. [Suspect]
     Active Substance: PROPOFOL
     Indication: EPILEPSY
     Dosage: INCREASED INFUSION RATE
     Route: 042
  7. TRANEXAMIC ACID. [Suspect]
     Active Substance: TRANEXAMIC ACID
     Indication: SPINAL ANAESTHESIA
     Route: 037
  8. FENTANYL. [Concomitant]
     Active Substance: FENTANYL
     Route: 037
  9. PROPOFOL. [Suspect]
     Active Substance: PROPOFOL
     Indication: EPILEPSY
     Route: 042

REACTIONS (3)
  - Wrong drug administered [Recovered/Resolved]
  - Status epilepticus [Recovered/Resolved]
  - Off label use [Recovered/Resolved]
